FAERS Safety Report 22000463 (Version 1)
Quarter: 2023Q1

REPORT INFORMATION
  Report Type: Spontaneous
  Country: US (occurrence: None)
  Receive Date: 20230215
  Receipt Date: 20230215
  Transmission Date: 20230417
  Serious: Yes (Hospitalization)
  Sender: FDA-Public Use
  Company Number: None

PATIENT
  Age: 74 Year
  Sex: Female
  Weight: 54.9 kg

DRUGS (16)
  1. IMBRUVICA [Suspect]
     Active Substance: IBRUTINIB
     Indication: Chronic lymphocytic leukaemia
     Dosage: 3 CAPSULES DAILY ORAL
     Route: 048
  2. ZEN PEP [Concomitant]
  3. HYOSCYAMINE [Concomitant]
     Active Substance: HYOSCYAMINE
  4. ONDANSETRON [Concomitant]
     Active Substance: ONDANSETRON
  5. BACLOFEN [Concomitant]
     Active Substance: BACLOFEN
  6. VITAMIN D3 [Concomitant]
     Active Substance: CHOLECALCIFEROL
  7. JWH-018 [Concomitant]
     Active Substance: JWH-018
  8. MAGNESIUM [Concomitant]
     Active Substance: MAGNESIUM
  9. MINERALS\VITAMINS [Concomitant]
     Active Substance: MINERALS\VITAMINS
  10. COENZYME Q10 [Concomitant]
     Active Substance: DIETARY SUPPLEMENT\UBIDECARENONE
  11. COLAGEN [Concomitant]
  12. B123 [Concomitant]
  13. BYOTIN [Concomitant]
  14. RAVESTEROL [Concomitant]
  15. HERBALS\TURMERIC [Concomitant]
     Active Substance: HERBALS\TURMERIC
  16. ALOE [Concomitant]
     Active Substance: ALOE

REACTIONS (3)
  - Pneumothorax [None]
  - Cardiac arrest [None]
  - Pleural effusion [None]

NARRATIVE: CASE EVENT DATE: 20180410
